FAERS Safety Report 5915952-8 (Version None)
Quarter: 2008Q4

REPORT INFORMATION
  Report Type: 
  Country: None (occurrence: None)
  Receive Date: 20081010
  Receipt Date: 20081007
  Transmission Date: 20090506
  Serious: Yes (Other)
  Sender: FDA-Public Use
  Company Number: US-ABBOTT-08P-163-0480485-00

PATIENT
  Sex: Female

DRUGS (16)
  1. HUMIRA [Suspect]
     Indication: COLITIS ULCERATIVE
     Route: 058
     Dates: start: 20080706, end: 20080919
  2. VITAMIN TAB [Concomitant]
     Indication: DRUG USE FOR UNKNOWN INDICATION
     Route: 048
     Dates: start: 20080706, end: 20080919
  3. CALCIUM W/MAGNESIUM [Concomitant]
     Indication: DRUG USE FOR UNKNOWN INDICATION
     Route: 048
     Dates: start: 20080706, end: 20080919
  4. CAFFEINE [Concomitant]
     Indication: DRUG USE FOR UNKNOWN INDICATION
     Route: 048
     Dates: start: 20080706, end: 20080812
  5. ENOXAPARIN SODIUM [Concomitant]
     Indication: ANTICOAGULANT THERAPY
     Route: 050
     Dates: start: 20080706, end: 20080919
  6. VICODIN [Concomitant]
     Indication: PAIN
     Route: 048
     Dates: start: 20080706, end: 20080808
  7. CLONAZEPAM [Concomitant]
     Indication: GASTROINTESTINAL DISORDER
     Route: 048
     Dates: start: 20080808, end: 20080808
  8. CLONAZEPAM [Concomitant]
     Route: 048
     Dates: start: 20080706, end: 20080807
  9. PROMETHAZINE [Concomitant]
     Indication: NAUSEA
     Route: 048
     Dates: start: 20080723, end: 20080802
  10. ACETAMINOPHEN [Concomitant]
     Indication: GASTROINTESTINAL DISORDER
     Route: 048
     Dates: start: 20080706, end: 20080810
  11. ACETAMINOPHEN [Concomitant]
     Indication: BACK DISORDER
  12. DIPHENHYDRAMINE HYDROCHLORIDE [Concomitant]
     Indication: RESPIRATORY TRACT CONGESTION
     Route: 048
     Dates: start: 20080706, end: 20080811
  13. ERGOCALCIFEROL [Concomitant]
     Indication: VITAMIN D DEFICIENCY
     Route: 048
     Dates: start: 20080818, end: 20080919
  14. PROMETHAZINE [Concomitant]
     Route: 048
     Dates: start: 20080819, end: 20080919
  15. ACETAMINOPHEN [Concomitant]
     Indication: HEADACHE
     Route: 048
     Dates: start: 20080814, end: 20080919
  16. OMEPRAZOLE MAGNESIUM [Concomitant]
     Indication: DYSPEPSIA
     Route: 048
     Dates: start: 20080905, end: 20080919

REACTIONS (2)
  - ABORTION SPONTANEOUS [None]
  - HEART RATE INCREASED [None]
